FAERS Safety Report 8091063-3 (Version None)
Quarter: 2012Q1

REPORT INFORMATION
  Report Type: 
  Country: None (occurrence: None)
  Receive Date: 20120129
  Receipt Date: 20111020
  Transmission Date: 20120608
  Serious: No
  Sender: FDA-Public Use
  Company Number: US-ABBOTT-11P-163-0867015-00

PATIENT
  Age: 55 Year
  Sex: Male

DRUGS (2)
  1. HUMIRA [Suspect]
     Indication: CROHN'S DISEASE
     Dates: end: 20110930
  2. ACCUPRIL [Concomitant]
     Indication: HYPERTENSION

REACTIONS (2)
  - MALAISE [None]
  - CROHN'S DISEASE [None]
